FAERS Safety Report 7864192-4 (Version None)
Quarter: 2011Q4

REPORT INFORMATION
  Report Type: 
  Country: None (occurrence: None)
  Receive Date: 20111028
  Receipt Date: 20111027
  Transmission Date: 20120403
  Serious: Yes (Other)
  Sender: FDA-Public Use
  Company Number: US-PFIZER INC-2011261907

PATIENT
  Sex: Female
  Weight: 67.12 kg

DRUGS (6)
  1. TOPROL-XL [Concomitant]
     Indication: HYPERTENSION
     Dosage: UNK
  2. ACETYLSALICYLIC ACID [Concomitant]
     Indication: ANTICOAGULANT THERAPY
     Dosage: UNK
  3. COUMADIN [Concomitant]
     Indication: ANTICOAGULANT THERAPY
     Dosage: UNK
  4. TOPROL-XL [Concomitant]
     Indication: HEART RATE ABNORMAL
  5. CORDARONE [Suspect]
     Indication: ATRIAL FIBRILLATION
     Dosage: 200 MG, 1X/DAY
     Route: 048
     Dates: start: 20110601
  6. SYNTHROID [Concomitant]
     Indication: HYPOTHYROIDISM
     Dosage: UNK

REACTIONS (7)
  - RESPIRATORY RATE INCREASED [None]
  - DIZZINESS [None]
  - GAIT DISTURBANCE [None]
  - BLOOD CALCIUM INCREASED [None]
  - WEIGHT INCREASED [None]
  - DRY SKIN [None]
  - SKIN DISORDER [None]
